FAERS Safety Report 6842099-9 (Version None)
Quarter: 2010Q3

REPORT INFORMATION
  Report Type: 
  Country: None (occurrence: None)
  Receive Date: 20100714
  Receipt Date: 20071214
  Transmission Date: 20110219
  Serious: No
  Sender: FDA-Public Use
  Company Number: US-PFIZER INC-2007062074

PATIENT
  Sex: Female
  Weight: 72.7 kg

DRUGS (9)
  1. CHANTIX [Suspect]
     Indication: SMOKING CESSATION THERAPY
     Route: 048
     Dates: start: 20070710, end: 20070717
  2. ACCUPRIL [Concomitant]
  3. PROTONIX [Concomitant]
  4. ZOCOR [Concomitant]
  5. PROZAC [Concomitant]
  6. SYNTHROID [Concomitant]
  7. MONTELUKAST SODIUM [Concomitant]
     Indication: ASTHMA
  8. VALIUM [Concomitant]
  9. GLUCOPHAGE [Concomitant]
     Indication: DIABETES MELLITUS

REACTIONS (3)
  - BRONCHITIS [None]
  - DIARRHOEA [None]
  - VOMITING [None]
